FAERS Safety Report 21928359 (Version 2)
Quarter: 2023Q2

REPORT INFORMATION
  Report Type: Report from Study
  Country: US (occurrence: US)
  Receive Date: 20230130
  Receipt Date: 20230425
  Transmission Date: 20230722
  Serious: Yes (Hospitalization, Other)
  Sender: FDA-Public Use
  Company Number: US-ABBVIE-4287999

PATIENT
  Age: 71 Year
  Sex: Female

DRUGS (25)
  1. HUMIRA [Suspect]
     Active Substance: ADALIMUMAB
     Indication: Crohn^s disease
     Route: 058
  2. HUMIRA [Suspect]
     Active Substance: ADALIMUMAB
     Route: 058
  3. CYMBALTA [Concomitant]
     Active Substance: DULOXETINE HYDROCHLORIDE
     Indication: Product used for unknown indication
     Dosage: 30 MG EVERY MORNING
  4. NEURONTIN [Concomitant]
     Active Substance: GABAPENTIN
     Indication: Product used for unknown indication
     Dosage: TAKE 1 CAPSULE BY MOUTH 3 TIMES DAILY
     Route: 048
  5. IMODIUM [Concomitant]
     Active Substance: LOPERAMIDE HYDROCHLORIDE
     Indication: Diarrhoea
     Dosage: TAKE 4 MG BY MOUTH AFTER FIRST LOOSE OR FREQUENT BOWEL MOVEMENT
     Route: 048
  6. IMODIUM [Concomitant]
     Active Substance: LOPERAMIDE HYDROCHLORIDE
     Indication: Diarrhoea
     Dosage: 2 MG EVERY 2 HRS (4 MG EVERY 4 HOURS AT NIGHT) UNTIL 12 HOURS HAVE PASSED WITHOUT A BOWEL MOVEMENT
     Route: 048
  7. GLUCOTROL [Concomitant]
     Active Substance: GLIPIZIDE
     Indication: Product used for unknown indication
     Dosage: 5 MG 2 TIMES DAILY
     Route: 048
  8. TYLENOL [Concomitant]
     Active Substance: ACETAMINOPHEN
     Indication: Product used for unknown indication
     Dosage: TAKE 2 TABLETS BY MOUTH 4 TIMES DAILY
  9. ZYRTEC [Concomitant]
     Active Substance: CETIRIZINE HYDROCHLORIDE
     Indication: Product used for unknown indication
     Dosage: TAKE 10 MG BY MOUTH EVERY MORNING
  10. NOVOLIN R [Concomitant]
     Active Substance: INSULIN HUMAN
     Indication: Product used for unknown indication
     Dosage: BEFORE LUNCH AND DINNER: TAKES 9 UNITS BEFORE LUNCH AND 11 UNITS BEFORE DINNER?100 UNIT/ML SOLUTI...
     Route: 058
  11. COENZYME Q10 [Concomitant]
     Active Substance: DIETARY SUPPLEMENT\UBIDECARENONE
     Indication: Product used for unknown indication
     Dosage: TAKE 100 MG BY MOUTH EVERY EVENING
  12. ZINC [Concomitant]
     Active Substance: ZINC
     Indication: Product used for unknown indication
     Dosage: TAKE 50 MG BY MOUTH NIGHTLY
     Route: 048
  13. VITAMIN D3 [Concomitant]
     Active Substance: CHOLECALCIFEROL
     Indication: Product used for unknown indication
     Dosage: TAKE 1,000 UNITS BY MOUTH EVERY EVENING
     Route: 048
  14. COMPAZINE [Concomitant]
     Active Substance: PROCHLORPERAZINE MALEATE
     Indication: Nausea
     Dosage: DISP: 60 TABLET, RFL: 3, TAKE 1 TABLET BY MOUTH EVERY 6 HOURS
     Route: 048
  15. COZAAR [Concomitant]
     Active Substance: LOSARTAN POTASSIUM
     Indication: Product used for unknown indication
     Dosage: 25 MG NIGHTLY
     Route: 048
  16. ROSUVASTATIN CALCIUM [Concomitant]
     Active Substance: ROSUVASTATIN CALCIUM
     Indication: Product used for unknown indication
     Dosage: TAKE 20 MG BY MOUTH EVERY EVENING
  17. PERCOCET [Concomitant]
     Active Substance: ACETAMINOPHEN\OXYCODONE HYDROCHLORIDE
     Indication: Product used for unknown indication
     Dosage: TAKES 1 TAB IN THE AM, TAKES 1/2 TAB LUNCH AND DINNER TIME ON AVERAGE?5-325 MG
     Route: 048
  18. CONTOUR [Concomitant]
     Indication: Product used for unknown indication
     Dosage: USE 1 STRIP TO CHECK GLUCOSE THREE TIMES DAILY
  19. EMLA [Concomitant]
     Active Substance: LIDOCAINE\PRILOCAINE
     Indication: Product used for unknown indication
     Dosage: USE AS DIRECTED, DISP: 30 G? 2.5-2.5 %
     Route: 061
  20. SENOKOT [Concomitant]
     Active Substance: SENNOSIDES
     Indication: Constipation
     Dosage: TAKE 2 TABLETS BY MOUTH EVERY MORNING
     Route: 048
  21. NOVOLIN N [Concomitant]
     Active Substance: INSULIN HUMAN
     Indication: Product used for unknown indication
     Dosage: TAKES 12 UNITS IN MORNING AND 16 UNITS AT BEDTIME?100 UNITS/ML SUSPENSION, INJECT INTO THE SKIN
  22. ZOFRAN [Concomitant]
     Active Substance: ONDANSETRON HYDROCHLORIDE
     Indication: Nausea
     Dosage: TAKE 1 TABLET BY MOUTH EVERY 8 HOURS AS NEEDED
     Route: 048
  23. PROBIOTIC-10 [Concomitant]
     Indication: Product used for unknown indication
     Dosage: TAKE 1 EACH BY MOUTH EVERY MORNING
  24. PROTONIX [Concomitant]
     Active Substance: PANTOPRAZOLE SODIUM
     Indication: Product used for unknown indication
     Dosage: 40 MG EVERY EVENING
     Route: 048
  25. VITAMIN C [Concomitant]
     Active Substance: ASCORBIC ACID
     Indication: Product used for unknown indication
     Dosage: TAKE 1,000 MG BY MOUTH DAILY
     Route: 048

REACTIONS (18)
  - Colitis [Unknown]
  - Chemotherapy [Recovered/Resolved]
  - Infected seroma [Unknown]
  - Surgery [Unknown]
  - Adenocarcinoma [Unknown]
  - Hepatic lesion [Unknown]
  - Memory impairment [Unknown]
  - Asthenia [Unknown]
  - Polyuria [Unknown]
  - Colectomy [Unknown]
  - Large intestine anastomosis [Unknown]
  - Procedural haemorrhage [Unknown]
  - Seroma drainage [Unknown]
  - Appetite disorder [Unknown]
  - Weight decreased [Unknown]
  - Fatigue [Unknown]
  - Peripheral coldness [Unknown]
  - Hyperhidrosis [Unknown]

NARRATIVE: CASE EVENT DATE: 20221216
